FAERS Safety Report 7029885-X (Version None)
Quarter: 2010Q4

REPORT INFORMATION
  Report Type: 
  Country: None (occurrence: None)
  Receive Date: 20101006
  Receipt Date: 20100927
  Transmission Date: 20110411
  Serious: Yes (Hospitalization)
  Sender: FDA-Public Use
  Company Number: 2009BI019696

PATIENT
  Age: 36 Year
  Sex: Female

DRUGS (2)
  1. TYSABRI [Suspect]
     Indication: MULTIPLE SCLEROSIS
     Route: 042
     Dates: start: 20081015, end: 20091015
  2. TYSABRI [Suspect]
     Route: 042
     Dates: start: 20100730

REACTIONS (10)
  - ABDOMINAL PAIN UPPER [None]
  - FEELING ABNORMAL [None]
  - HERPES ZOSTER [None]
  - HYPERACUSIS [None]
  - HYPOVITAMINOSIS [None]
  - INFLUENZA [None]
  - LOSS OF CONSCIOUSNESS [None]
  - PHOTOSENSITIVITY REACTION [None]
  - PYREXIA [None]
  - TRIGEMINAL NEURALGIA [None]
